FAERS Safety Report 19171876 (Version 1)
Quarter: 2021Q2

REPORT INFORMATION
  Report Type: Spontaneous
  Country: US (occurrence: US)
  Receive Date: 20210423
  Receipt Date: 20210423
  Transmission Date: 20210717
  Serious: No
  Sender: FDA-Public Use
  Company Number: US-SA-2021SA129573

PATIENT
  Sex: Female

DRUGS (2)
  1. LANTUS SOLOSTAR [Suspect]
     Active Substance: INSULIN GLARGINE
     Dosage: 20 IU, QD
     Route: 065
  2. LANTUS SOLOSTAR [Suspect]
     Active Substance: INSULIN GLARGINE
     Dosage: 16?18 UNITS DAILY
     Route: 065

REACTIONS (8)
  - Pain in extremity [Unknown]
  - Arthritis [Unknown]
  - Product dose omission issue [Unknown]
  - Device issue [Unknown]
  - Blood glucose increased [Unknown]
  - Visual impairment [Unknown]
  - Muscular weakness [Unknown]
  - Intentional product misuse [Unknown]
